FAERS Safety Report 6918144-9 (Version None)
Quarter: 2010Q3

REPORT INFORMATION
  Report Type: 
  Country: None (occurrence: None)
  Receive Date: 20100806
  Receipt Date: 20100721
  Transmission Date: 20110219
  Serious: Yes (Disabling)
  Sender: FDA-Public Use
  Company Number: AXC-2010-000201

PATIENT
  Age: 44 Year
  Sex: Female

DRUGS (1)
  1. PYLERA [Suspect]
     Indication: HELICOBACTER INFECTION
     Dosage: 3 CAPSULES QID, ORAL
     Route: 048
     Dates: start: 20100718, end: 20100720

REACTIONS (1)
  - OROPHARYNGEAL PAIN [None]
